FAERS Safety Report 18857165 (Version 3)
Quarter: 2021Q2

REPORT INFORMATION
  Report Type: Spontaneous
  Country: US (occurrence: US)
  Receive Date: 20210208
  Receipt Date: 20210406
  Transmission Date: 20210717
  Serious: Yes (Other)
  Sender: FDA-Public Use
  Company Number: US-CELLTRION INC.-2021US001284

PATIENT

DRUGS (2)
  1. INFLECTRA [Suspect]
     Active Substance: INFLIXIMAB-DYYB
     Indication: HIDRADENITIS
     Dosage: 6 MG/KG EVERY 6 WEEKS
     Route: 065
  2. REMICADE [Suspect]
     Active Substance: INFLIXIMAB
     Indication: HIDRADENITIS
     Dosage: RE?INITIATION AFTER BIOSIMILAR INFLIXIMAB WITHDRAWAL

REACTIONS (4)
  - Drug specific antibody [Unknown]
  - Anaphylactic reaction [Recovered/Resolved]
  - Off label use [Unknown]
  - Infusion related reaction [Unknown]
